FAERS Safety Report 4766861-1 (Version None)
Quarter: 2005Q3

REPORT INFORMATION
  Report Type: 
  Country: None (occurrence: None)
  Receive Date: 20050909
  Receipt Date: 20050902
  Transmission Date: 20060218
  Serious: Yes (Hospitalization)
  Sender: FDA-Public Use
  Company Number: 2005-132153-NL

PATIENT
  Age: 40 Year
  Sex: Male

DRUGS (6)
  1. ROCURONIUM BROMIDE [Suspect]
     Dosage: DF
     Dates: start: 20030407, end: 20030407
  2. THIOPENTONE SODIUM [Suspect]
     Dates: start: 20030407, end: 20030407
  3. SUXAMETHONIUM [Suspect]
     Dosage: DF
     Dates: start: 20030407, end: 20030407
  4. ISOFLURANE [Suspect]
     Dates: start: 20030407, end: 20330407
  5. NITROUS OXIDE [Suspect]
     Dosage: DF
     Dates: start: 20030407, end: 20030407
  6. MORPHINE [Suspect]
     Dosage: DF
     Dates: start: 20030407, end: 20030407

REACTIONS (1)
  - HYPERTHERMIA MALIGNANT [None]
